FAERS Safety Report 19139504 (Version 3)
Quarter: 2023Q2

REPORT INFORMATION
  Report Type: Other
  Country: CO (occurrence: CO)
  Receive Date: 20210415
  Receipt Date: 20230509
  Transmission Date: 20230722
  Serious: No
  Sender: FDA-Public Use
  Company Number: CO-TOLMAR, INC.-21CO026395

PATIENT
  Age: 91 Year
  Sex: Male

DRUGS (2)
  1. ELIGARD [Suspect]
     Active Substance: LEUPROLIDE ACETATE
     Indication: Prostate cancer
     Dosage: 45 MG
     Route: 058
     Dates: start: 20200715, end: 20211019
  2. ELIGARD [Suspect]
     Active Substance: LEUPROLIDE ACETATE
     Dosage: 45 MG
     Route: 058
     Dates: start: 20161201, end: 202204

REACTIONS (1)
  - Blood creatine decreased [Not Recovered/Not Resolved]

NARRATIVE: CASE EVENT DATE: 20210315
